FAERS Safety Report 22628163 (Version 2)
Quarter: 2023Q2

REPORT INFORMATION
  Report Type: Spontaneous
  Country: US (occurrence: US)
  Receive Date: 20230622
  Receipt Date: 20230628
  Transmission Date: 20230721
  Serious: Yes (Other)
  Sender: FDA-Public Use
  Company Number: US-AMGEN-USASP2023106589

PATIENT
  Age: 21 Year
  Sex: Female
  Weight: 71 kg

DRUGS (1)
  1. ARANESP [Suspect]
     Active Substance: DARBEPOETIN ALFA
     Indication: Anaemia
     Dosage: UNK
     Route: 058

REACTIONS (4)
  - Reticulocytopenia [Unknown]
  - Anaemia [Unknown]
  - Heavy menstrual bleeding [Recovered/Resolved]
  - Amenorrhoea [Unknown]
